FAERS Safety Report 20975549 (Version 1)
Quarter: 2022Q2

REPORT INFORMATION
  Report Type: Report from Study
  Country: ES (occurrence: ES)
  Receive Date: 20220617
  Receipt Date: 20220617
  Transmission Date: 20220721
  Serious: Yes (Other)
  Sender: FDA-Public Use
  Company Number: None

PATIENT
  Age: 67 Year
  Sex: Female

DRUGS (1)
  1. SIMPONI [Suspect]
     Active Substance: GOLIMUMAB
     Indication: Psoriatic arthropathy
     Dosage: 50 MG / 4 SEMANAS
     Route: 058
     Dates: start: 20140926

REACTIONS (1)
  - Otitis externa [Recovered/Resolved]

NARRATIVE: CASE EVENT DATE: 20210925
